FAERS Safety Report 16686976 (Version 1)
Quarter: 2019Q3

REPORT INFORMATION
  Report Type: Spontaneous
  Country: GB (occurrence: GB)
  Receive Date: 20190809
  Receipt Date: 20190809
  Transmission Date: 20191004
  Serious: Yes (Hospitalization)
  Sender: FDA-Public Use
  Company Number: GB-ACCORD-150813

PATIENT
  Age: 85 Year
  Sex: Male

DRUGS (12)
  1. ROSUVASTATIN/ROSUVASTATIN CALCIUM [Concomitant]
     Dosage: MORNING. WITH FOOD.
  2. LANSOPRAZOLE. [Concomitant]
     Active Substance: LANSOPRAZOLE
     Dosage: EACH MORNING
  3. FUROSEMIDE. [Suspect]
     Active Substance: FUROSEMIDE
     Indication: PRODUCT USED FOR UNKNOWN INDICATION
     Dosage: TWO IN THE MORNING AND TWO IN THE AFTERNOON
  4. SPIRONOLACTONE. [Suspect]
     Active Substance: SPIRONOLACTONE
     Indication: PRODUCT USED FOR UNKNOWN INDICATION
     Dates: start: 20190124
  5. SALBUTAMOL [Concomitant]
     Active Substance: ALBUTEROL
  6. BISOPROLOL [Concomitant]
     Active Substance: BISOPROLOL
  7. RAMIPRIL. [Concomitant]
     Active Substance: RAMIPRIL
     Dosage: STOPPED AND INCREASED TO 2.5MG.
  8. FOSTAIR [Concomitant]
     Active Substance: BECLOMETHASONE\FORMOTEROL
     Dosage: 100MICROGRAMS/DOSE / 6MICROGRAMS/DOSE
     Route: 055
  9. FLUCLOXACILLIN [Concomitant]
     Active Substance: FLUCLOXACILLIN
     Dates: start: 20190124
  10. RAMIPRIL. [Concomitant]
     Active Substance: RAMIPRIL
  11. RIVAROXABAN [Concomitant]
     Active Substance: RIVAROXABAN
  12. BRALTUS [Concomitant]
     Active Substance: TIOTROPIUM BROMIDE

REACTIONS (1)
  - Gout [Recovering/Resolving]
